FAERS Safety Report 7965143-4 (Version None)
Quarter: 2011Q4

REPORT INFORMATION
  Report Type: 
  Country: None (occurrence: None)
  Receive Date: 20111208
  Receipt Date: 20111205
  Transmission Date: 20120403
  Serious: No
  Sender: FDA-Public Use
  Company Number: US-TEVA-312607USA

PATIENT
  Sex: Female
  Weight: 63.56 kg

DRUGS (2)
  1. ANTIBIOTICS [Concomitant]
     Indication: URINARY TRACT INFECTION
  2. PLAN B ONE-STEP [Suspect]
     Indication: POST COITAL CONTRACEPTION
     Dosage: 1.5 MILLIGRAM;
     Route: 048
     Dates: start: 20111123, end: 20111123

REACTIONS (4)
  - BREAST TENDERNESS [None]
  - URINARY TRACT INFECTION [None]
  - MENSTRUATION IRREGULAR [None]
  - VASODILATATION [None]
